FAERS Safety Report 9200411 (Version 1)
Quarter: 2013Q1

REPORT INFORMATION
  Report Type: Spontaneous
  Country: US (occurrence: US)
  Receive Date: 20130329
  Receipt Date: 20130329
  Transmission Date: 20140127
  Serious: No
  Sender: FDA-Public Use
  Company Number: US-ASTRAZENECA-2013SE18454

PATIENT
  Age: 69 Year
  Sex: Male
  Weight: 90.7 kg

DRUGS (10)
  1. NEXIUM [Suspect]
     Indication: GASTROOESOPHAGEAL REFLUX DISEASE
     Dosage: DOSE UNKNOWN BID
     Route: 048
     Dates: start: 2003
  2. NEXIUM [Suspect]
     Indication: GASTRITIS
     Dosage: DOSE UNKNOWN BID
     Route: 048
     Dates: start: 2003
  3. NEXIUM [Suspect]
     Indication: BARRETT^S OESOPHAGUS
     Dosage: DOSE UNKNOWN BID
     Route: 048
     Dates: start: 2003
  4. NEXIUM [Suspect]
     Indication: GASTROOESOPHAGEAL REFLUX DISEASE
     Dosage: DOSE UNKNOWN DAILY
     Route: 048
  5. NEXIUM [Suspect]
     Indication: GASTRITIS
     Dosage: DOSE UNKNOWN DAILY
     Route: 048
  6. NEXIUM [Suspect]
     Indication: BARRETT^S OESOPHAGUS
     Dosage: DOSE UNKNOWN DAILY
     Route: 048
  7. PRILOSEC [Suspect]
     Indication: GASTROOESOPHAGEAL REFLUX DISEASE
     Dosage: DOSE UKNOWN DAILY
     Route: 048
  8. PRILOSEC [Suspect]
     Indication: GASTRITIS
     Dosage: DOSE UKNOWN DAILY
     Route: 048
  9. PRILOSEC [Suspect]
     Indication: BARRETT^S OESOPHAGUS
     Dosage: DOSE UKNOWN DAILY
     Route: 048
  10. ANTACIDS [Concomitant]

REACTIONS (4)
  - Dyspepsia [Unknown]
  - Dyspepsia [Unknown]
  - Intentional drug misuse [Unknown]
  - Drug ineffective [Unknown]
